FAERS Safety Report 10188430 (Version 2)
Quarter: 2014Q2

REPORT INFORMATION
  Report Type: Spontaneous
  Country: US (occurrence: US)
  Receive Date: 20140522
  Receipt Date: 20140522
  Transmission Date: 20141212
  Serious: No
  Sender: FDA-Public Use
  Company Number: US-ASTRAZENECA-2009UW20909

PATIENT
  Age: 79 Year
  Sex: Female
  Weight: 61.2 kg

DRUGS (9)
  1. FLONASE [Concomitant]
  2. PULMICORT FLEXHALER [Suspect]
     Indication: ASTHMA
     Route: 055
  3. PULMICORT FLEXHALER [Suspect]
     Indication: ASTHMA
     Dosage: DRACO AB 200 UG 1 PUFF ONCE DAILY
     Route: 055
     Dates: start: 2002
  4. NEXIUM [Suspect]
     Indication: GASTROOESOPHAGEAL REFLUX DISEASE
     Route: 048
  5. PRILOSEC MERCK SHARP + DOME (NON-AZ PRODUCT) [Suspect]
     Indication: COUGH
     Route: 048
  6. PRILOSEC MERCK SHARP + DOME (NON-AZ PRODUCT) [Suspect]
     Indication: GASTROOESOPHAGEAL REFLUX DISEASE
     Route: 048
  7. DICYCLOMINE [Concomitant]
  8. DELTASONE [Concomitant]
  9. ARMOUR THYROID [Concomitant]

REACTIONS (6)
  - Dysphagia [Unknown]
  - Dyspepsia [Unknown]
  - Cough [Unknown]
  - Dysphonia [Not Recovered/Not Resolved]
  - Drug ineffective for unapproved indication [Unknown]
  - Drug dose omission [Unknown]
